FAERS Safety Report 7177081-8 (Version None)
Quarter: 2010Q4

REPORT INFORMATION
  Report Type: 
  Country: None (occurrence: None)
  Receive Date: 20101220
  Receipt Date: 20101209
  Transmission Date: 20110411
  Serious: Yes (Hospitalization)
  Sender: FDA-Public Use
  Company Number: US-JNJFOC-20101204780

PATIENT
  Sex: Female
  Weight: 33.4 kg

DRUGS (9)
  1. REMICADE [Suspect]
     Indication: INFLAMMATORY BOWEL DISEASE
     Route: 042
  2. MESALAMINE [Concomitant]
  3. LURIDE [Concomitant]
  4. VANCOMYCIN [Concomitant]
  5. MULTI-VITAMINS [Concomitant]
  6. VITAMIN D [Concomitant]
  7. SLOW FE [Concomitant]
  8. CULTURELLE [Concomitant]
  9. VIACTIV CALCIUM CHEWS [Concomitant]

REACTIONS (1)
  - DIARRHOEA [None]
